FAERS Safety Report 24630646 (Version 6)
Quarter: 2025Q1

REPORT INFORMATION
  Report Type: Spontaneous
  Country: US (occurrence: US)
  Receive Date: 20241118
  Receipt Date: 20250213
  Transmission Date: 20250409
  Serious: No
  Sender: PFIZER
  Company Number: US-PFIZER INC-PV202400147442

PATIENT
  Age: 14 Year
  Sex: Female
  Weight: 56.7 kg

DRUGS (4)
  1. GENOTROPIN [Suspect]
     Active Substance: SOMATROPIN
     Indication: Growth hormone deficiency
     Dosage: 1.4 MG, DAILY
     Dates: start: 2010
  2. SYNTHROID [Concomitant]
     Active Substance: LEVOTHYROXINE SODIUM
  3. HYDROCORTISONE [Concomitant]
     Active Substance: HYDROCORTISONE
  4. CLONIDINE [Concomitant]
     Active Substance: CLONIDINE

REACTIONS (4)
  - Drug dose omission by device [Unknown]
  - Expired device used [Unknown]
  - Device breakage [Unknown]
  - Device leakage [Unknown]
